FAERS Safety Report 10640525 (Version 1)
Quarter: 2014Q4

REPORT INFORMATION
  Report Type: Spontaneous
  Country: US (occurrence: None)
  Receive Date: 20141205
  Receipt Date: 20141205
  Transmission Date: 20150529
  Serious: Yes (Hospitalization)
  Sender: FDA-Public Use
  Company Number: None

PATIENT
  Age: 47 Year
  Sex: Male
  Weight: 60.8 kg

DRUGS (2)
  1. IPILIMUMAB [Suspect]
     Active Substance: IPILIMUMAB
     Dosage: 10/3, 10/24, 11/14; Q3 WEEKS X 4
     Route: 042
     Dates: start: 20140912
  2. SRS RADIATION THERAPY [Suspect]
     Active Substance: RADIATION THERAPY
     Dates: start: 20140910

REACTIONS (5)
  - Syncope [None]
  - Thrombosis [None]
  - Pulmonary embolism [None]
  - Drug withdrawal syndrome [None]
  - Deep vein thrombosis [None]

NARRATIVE: CASE EVENT DATE: 20141125
